FAERS Safety Report 10026910 (Version 3)
Quarter: 2014Q2

REPORT INFORMATION
  Report Type: Spontaneous
  Country: US (occurrence: US)
  Receive Date: 20140321
  Receipt Date: 20140415
  Transmission Date: 20141212
  Serious: Yes (Death)
  Sender: FDA-Public Use
  Company Number: US-CELGENEUS-163-21880-14032261

PATIENT
  Age: 77 Year
  Sex: Female

DRUGS (24)
  1. REVLIMID [Suspect]
     Indication: PLASMA CELL MYELOMA
     Dosage: 5 MILLIGRAM
     Route: 048
     Dates: start: 201112, end: 201206
  2. REVLIMID [Suspect]
     Dosage: 10 MILLIGRAM
     Route: 048
     Dates: start: 201206
  3. REVLIMID [Suspect]
     Dosage: 5 MILLIGRAM
     Route: 048
     Dates: start: 20130807, end: 20140304
  4. BACTRIM DS [Concomitant]
     Indication: PRODUCT USED FOR UNKNOWN INDICATION
     Dosage: 800 MG/ 160 MG
     Route: 048
  5. SPECTAZOLE [Concomitant]
     Indication: PRODUCT USED FOR UNKNOWN INDICATION
     Dosage: 1 APPLICATION TO AFFECTED FOOT
     Route: 065
  6. VICODIN [Concomitant]
     Indication: PAIN
     Dosage: 5 MG / 500 MG
     Route: 048
  7. PROAIR [Concomitant]
     Indication: WHEEZING
     Dosage: 2 PUFFS
     Route: 048
  8. PROAIR [Concomitant]
     Indication: DYSPNOEA
  9. PROAIR [Concomitant]
     Indication: COUGH
  10. PRINIVIL [Concomitant]
     Indication: PRODUCT USED FOR UNKNOWN INDICATION
     Dosage: 10 MILLIGRAM
     Route: 048
  11. VALTREX [Concomitant]
     Indication: PRODUCT USED FOR UNKNOWN INDICATION
     Dosage: 500 MILLIGRAM
     Route: 048
  12. VALTREX [Concomitant]
     Dosage: 1000 MILLIGRAM
     Route: 048
  13. LIPITOR [Concomitant]
     Indication: PRODUCT USED FOR UNKNOWN INDICATION
     Dosage: 40 MILLIGRAM
     Route: 048
  14. LEXAPRO [Concomitant]
     Indication: PRODUCT USED FOR UNKNOWN INDICATION
     Dosage: 20 MILLIGRAM
     Route: 048
  15. MICRO-K [Concomitant]
     Indication: PRODUCT USED FOR UNKNOWN INDICATION
     Dosage: 40 MILLIEQUIVALENTS
     Route: 048
  16. MICRO-K [Concomitant]
     Dosage: 40 MILLIEQUIVALENTS
     Route: 048
  17. LEVOTHYROXINE [Concomitant]
     Indication: PRODUCT USED FOR UNKNOWN INDICATION
     Dosage: 75 MICROGRAM
     Route: 048
  18. ASPIRIN [Concomitant]
     Indication: PRODUCT USED FOR UNKNOWN INDICATION
     Dosage: 81 MILLIGRAM
     Route: 048
  19. DESYREL [Concomitant]
     Indication: SLEEP DISORDER
     Dosage: 1-2 TABS
     Route: 048
  20. ACIPHEX [Concomitant]
     Indication: PRODUCT USED FOR UNKNOWN INDICATION
     Dosage: 20 MILLIEQUIVALENTS
     Route: 048
  21. LOPERAMIDE [Concomitant]
     Indication: DIARRHOEA
     Route: 048
  22. ARANESP [Concomitant]
     Indication: ANAEMIA
     Route: 058
  23. ALBUTEROL [Concomitant]
     Indication: PRODUCT USED FOR UNKNOWN INDICATION
     Dosage: 1 AMPULE
     Route: 065
  24. ROBITUSSIN [Concomitant]
     Indication: COUGH
     Dosage: 100MG-10MG/5 ML
     Route: 048

REACTIONS (2)
  - Chronic obstructive pulmonary disease [Fatal]
  - Thrombocytopenia [Recovering/Resolving]
